FAERS Safety Report 9356953 (Version 1)
Quarter: 2013Q2

REPORT INFORMATION
  Report Type: Spontaneous
  Country: US (occurrence: US)
  Receive Date: 20130620
  Receipt Date: 20130620
  Transmission Date: 20140414
  Serious: Yes (Other)
  Sender: FDA-Public Use
  Company Number: US-009507513-1306USA003375

PATIENT
  Sex: Female

DRUGS (3)
  1. INVANZ [Suspect]
     Indication: URINARY TRACT INFECTION
     Dosage: UNK UNK, QD
     Route: 042
  2. CIPRO [Concomitant]
     Indication: URINARY TRACT INFECTION
  3. ERTAPENEM SODIUM [Concomitant]
     Indication: ESCHERICHIA INFECTION

REACTIONS (1)
  - Convulsion [Recovered/Resolved]
